FAERS Safety Report 15160485 (Version 11)
Quarter: 2019Q2

REPORT INFORMATION
  Report Type: Spontaneous
  Country: US (occurrence: US)
  Receive Date: 20180718
  Receipt Date: 20190531
  Transmission Date: 20190711
  Serious: Yes (Hospitalization)
  Sender: FDA-Public Use
  Company Number: US-ACTELION-A-US2018-175647

PATIENT
  Age: 41 Year
  Sex: Female

DRUGS (3)
  1. VELETRI [Suspect]
     Active Substance: EPOPROSTENOL
     Indication: PULMONARY ARTERIAL HYPERTENSION
     Dosage: 45 NG/KG, PER MIN
     Route: 042
     Dates: start: 20160910
  2. OPSUMIT [Suspect]
     Active Substance: MACITENTAN
     Indication: PULMONARY ARTERIAL HYPERTENSION
     Dosage: 10 MG, QD
     Route: 048
     Dates: start: 20140703
  3. ADCIRCA [Concomitant]
     Active Substance: TADALAFIL
     Dosage: 40 MG, QD
     Dates: start: 20170109

REACTIONS (15)
  - Catheter management [Unknown]
  - Dyspnoea [Unknown]
  - Catheter site granuloma [Unknown]
  - Headache [Unknown]
  - Vomiting [Not Recovered/Not Resolved]
  - Device leakage [Unknown]
  - Fatigue [Not Recovered/Not Resolved]
  - Device related infection [Not Recovered/Not Resolved]
  - Complication associated with device [Not Recovered/Not Resolved]
  - Hospitalisation [Unknown]
  - Product administration error [Unknown]
  - Dizziness [Not Recovered/Not Resolved]
  - Sepsis [Recovered/Resolved]
  - Therapy change [Unknown]
  - Product dose omission [Unknown]

NARRATIVE: CASE EVENT DATE: 20180827
